FAERS Safety Report 9868961 (Version 1)
Quarter: 2014Q1

REPORT INFORMATION
  Report Type: Spontaneous
  Country: US (occurrence: US)
  Receive Date: 20140205
  Receipt Date: 20140205
  Transmission Date: 20141002
  Serious: Yes (Other)
  Sender: FDA-Public Use
  Company Number: US-ROCHE-1342939

PATIENT
  Sex: Female

DRUGS (3)
  1. XOLAIR [Suspect]
     Indication: ASTHMA
     Dosage: ^GIVEN AS 150MG SUBQ IN TWO SEPERATE SITES^
     Route: 058
     Dates: start: 201310, end: 20131220
  2. PREDNISONE [Concomitant]
  3. QUERCETIN [Concomitant]

REACTIONS (3)
  - Cough [Unknown]
  - Upper respiratory tract congestion [Unknown]
  - Throat irritation [Unknown]
